FAERS Safety Report 18001023 (Version 1)
Quarter: 2020Q3

REPORT INFORMATION
  Report Type: Spontaneous
  Country: CA (occurrence: CA)
  Receive Date: 20200709
  Receipt Date: 20200709
  Transmission Date: 20201103
  Serious: Yes (Hospitalization)
  Sender: FDA-Public Use
  Company Number: CA-TEVA-2020-CA-1798225

PATIENT
  Age: 4 Year
  Sex: Male

DRUGS (5)
  1. GRANISETRON HYDROCHLORIDE INJECTION [Concomitant]
     Active Substance: GRANISETRON HYDROCHLORIDE
  2. CARBOPLATIN INJECTION [Suspect]
     Active Substance: CARBOPLATIN
     Route: 065
  3. NABILONE [Concomitant]
     Active Substance: NABILONE
  4. VINCRISTINE SULFATE INJECTION [Suspect]
     Active Substance: VINCRISTINE SULFATE
     Route: 065
  5. KEPPRA [Concomitant]
     Active Substance: LEVETIRACETAM

REACTIONS (3)
  - Neutropenia [Unknown]
  - Vomiting [Unknown]
  - Pyrexia [Unknown]
